FAERS Safety Report 20872770 (Version 3)
Quarter: 2023Q1

REPORT INFORMATION
  Report Type: Spontaneous
  Country: JP (occurrence: JP)
  Receive Date: 20220525
  Receipt Date: 20230202
  Transmission Date: 20230418
  Serious: Yes (Hospitalization)
  Sender: FDA-Public Use
  Company Number: JP-MTPC-MTPC2022-0013162

PATIENT
  Age: 20 Year
  Sex: Female

DRUGS (13)
  1. REMICADE [Suspect]
     Active Substance: INFLIXIMAB
     Indication: Colitis ulcerative
     Dosage: 400 MILLIGRAM, QD
     Route: 041
     Dates: start: 20150617, end: 20150617
  2. REMICADE [Suspect]
     Active Substance: INFLIXIMAB
     Dosage: 400 MILLIGRAM, QD
     Route: 041
     Dates: start: 20150805, end: 20150805
  3. TACROLIMUS [Suspect]
     Active Substance: TACROLIMUS
     Indication: Colitis ulcerative
     Dosage: 2 MILLIGRAM, BID
     Route: 048
     Dates: start: 20150601, end: 20150715
  4. PREDNISOLONE [Suspect]
     Active Substance: PREDNISOLONE
     Indication: Colitis ulcerative
     Dosage: 4 DOSAGE FORM, QD
     Route: 048
     Dates: start: 20150619
  5. MERCAPTOPURINE [Suspect]
     Active Substance: MERCAPTOPURINE
     Indication: Colitis ulcerative
     Dosage: 50 MILLIGRAM, QD
     Route: 048
     Dates: end: 20150816
  6. PENTASA [Concomitant]
     Active Substance: MESALAMINE
     Indication: Colitis ulcerative
     Dosage: 8 DOSAGE FORM, QD
     Route: 048
     Dates: start: 20150529
  7. LANSOPRAZOLE [Concomitant]
     Active Substance: LANSOPRAZOLE
     Indication: Colitis ulcerative
     Dosage: 2 DOSAGE FORM, QD
     Route: 048
     Dates: start: 20150615
  8. REBAMIPIDE [Concomitant]
     Active Substance: REBAMIPIDE
     Indication: Colitis ulcerative
     Dosage: 3 DOSAGE FORM, QD
     Route: 048
     Dates: start: 20150619
  9. ALFAROL [Concomitant]
     Active Substance: ALFACALCIDOL
     Indication: Colitis ulcerative
     Dosage: 1 DOSAGE FORM, QD
     Route: 048
     Dates: start: 20150619
  10. CERCINE [Concomitant]
     Active Substance: DIAZEPAM
     Indication: Colitis ulcerative
     Dosage: 2 DOSAGE FORM, QD
     Route: 048
     Dates: start: 20150723
  11. NOVORAPID [Concomitant]
     Active Substance: INSULIN ASPART
     Indication: Diabetes mellitus
     Dosage: 11 INTERNATIONAL UNIT, QD
     Route: 058
     Dates: start: 20150731
  12. BIOFERMIN [BACILLUS SUBTILIS;ENTEROCOCCUS FAECALIS;LACTOBACILLUS ACIDO [Concomitant]
     Indication: Colitis ulcerative
     Dosage: 6 DOSAGE FORM, QD
     Route: 048
  13. TRIMEBUTINE [Concomitant]
     Active Substance: TRIMEBUTINE
     Indication: Colitis ulcerative
     Dosage: 300 MILLIGRAM, QD
     Route: 048

REACTIONS (1)
  - Salmonella sepsis [Recovering/Resolving]

NARRATIVE: CASE EVENT DATE: 20150817
